FAERS Safety Report 15251653 (Version 1)
Quarter: 2018Q3

REPORT INFORMATION
  Report Type: Spontaneous
  Country: US (occurrence: US)
  Receive Date: 20180717
  Receipt Date: 20180717
  Transmission Date: 20181010
  Serious: No
  Sender: FDA-Public Use
  Company Number: None

PATIENT
  Age: 62 Year
  Sex: Male
  Weight: 116.12 kg

DRUGS (1)
  1. PREDNISONE 10MG [Suspect]
     Active Substance: PREDNISONE
     Indication: SINUSITIS
     Dosage: ?          QUANTITY:5 DF DOSAGE FORM;?
     Route: 048
     Dates: start: 20180330, end: 20180403

REACTIONS (2)
  - Hyposmia [None]
  - Treatment noncompliance [None]

NARRATIVE: CASE EVENT DATE: 20180330
